FAERS Safety Report 11497540 (Version 1)
Quarter: 2015Q3

REPORT INFORMATION
  Report Type: Spontaneous
  Country: US (occurrence: US)
  Receive Date: 20150911
  Receipt Date: 20150911
  Transmission Date: 20151125
  Serious: Yes (Disabling, Other)
  Sender: FDA-Public Use
  Company Number: US-TEVA-592276USA

PATIENT
  Sex: Female
  Weight: 69.92 kg

DRUGS (6)
  1. COUMADIN [Interacting]
     Active Substance: WARFARIN SODIUM
     Route: 065
  2. TYLENOL [Interacting]
     Active Substance: ACETAMINOPHEN
     Indication: PAIN
     Route: 065
  3. GABAPENTIN. [Suspect]
     Active Substance: GABAPENTIN
     Indication: NEURALGIA
  4. GABAPENTIN. [Suspect]
     Active Substance: GABAPENTIN
     Indication: MYALGIA
     Route: 065
  5. LYRICA [Suspect]
     Active Substance: PREGABALIN
     Indication: ARTHRITIS
     Dosage: 75 MILLIGRAM DAILY;
     Route: 048
  6. LYRICA [Suspect]
     Active Substance: PREGABALIN
     Indication: FIBROMYALGIA

REACTIONS (8)
  - Drug interaction [Unknown]
  - Activities of daily living impaired [Unknown]
  - Blood disorder [Unknown]
  - Lethargy [Unknown]
  - Prothrombin level increased [Unknown]
  - Epistaxis [Unknown]
  - Mobility decreased [Unknown]
  - Drug ineffective [Unknown]
